FAERS Safety Report 18525315 (Version 1)
Quarter: 2020Q4

REPORT INFORMATION
  Report Type: Report from Study
  Country: ES (occurrence: ES)
  Receive Date: 20201119
  Receipt Date: 20201119
  Transmission Date: 20210114
  Serious: Yes (Hospitalization, Other)
  Sender: FDA-Public Use
  Company Number: ES-GILEAD-2020-0494224

PATIENT
  Age: 8 Year
  Sex: Male

DRUGS (11)
  1. OXYGEN. [Concomitant]
     Active Substance: OXYGEN
  2. TOCILIZUMAB. [Concomitant]
     Active Substance: TOCILIZUMAB
  3. REMDESIVIR. [Suspect]
     Active Substance: REMDESIVIR
     Indication: COVID-19
     Dosage: UNSPECIFIED DOSE ONLY ADMINISTERED FOR 5 DAYS
     Route: 042
     Dates: start: 2020
  4. REMDESIVIR. [Suspect]
     Active Substance: REMDESIVIR
     Dosage: UNSPECIFIED DOSE FOR 10 DAYS
     Route: 042
     Dates: start: 202011
  5. HYDROXYCHLOROQUINE [Concomitant]
     Active Substance: HYDROXYCHLOROQUINE
     Indication: COVID-19
  6. ANAKINRA [Concomitant]
     Active Substance: ANAKINRA
  7. CD45RA- LYMPHOCYTES [Concomitant]
  8. LOPINAVIR + RITONAVIR [Concomitant]
     Active Substance: LOPINAVIR\RITONAVIR
  9. METHYLPREDNISOLONE. [Concomitant]
     Active Substance: METHYLPREDNISOLONE
  10. AZITHROMYCIN ANHYDROUS. [Concomitant]
     Active Substance: AZITHROMYCIN ANHYDROUS
  11. HEPARIN [Concomitant]
     Active Substance: HEPARIN SODIUM
     Indication: PROPHYLAXIS

REACTIONS (4)
  - Off label use [Unknown]
  - Hypertriglyceridaemia [Recovering/Resolving]
  - Drug ineffective [Recovering/Resolving]
  - Renal failure [Recovering/Resolving]

NARRATIVE: CASE EVENT DATE: 2020
